FAERS Safety Report 9134001 (Version 1)
Quarter: 2013Q1

REPORT INFORMATION
  Report Type: Spontaneous
  Country: CN (occurrence: None)
  Receive Date: 20130226
  Receipt Date: 20130226
  Transmission Date: 20140127
  Serious: Yes (Death)
  Sender: FDA-Public Use
  Company Number: None

PATIENT
  Age: 90 Year
  Sex: Female
  Weight: 50 kg

DRUGS (3)
  1. CELECOXIB [Suspect]
     Dosage: 200MG  EACH  TIME   400MG  PER  DAY   PO?11/07/2011  --  11/14/2011
     Route: 048
     Dates: start: 20111107, end: 20111114
  2. NITRENDIPINE TABLETS [Concomitant]
  3. FUROSEMIDE TABLETS, USP [Concomitant]

REACTIONS (1)
  - Gastrointestinal haemorrhage [None]
